FAERS Safety Report 5503967-3 (Version None)
Quarter: 2007Q4

REPORT INFORMATION
  Report Type: 
  Country: None (occurrence: None)
  Receive Date: 20071030
  Receipt Date: 20071030
  Transmission Date: 20080405
  Serious: Yes (Hospitalization)
  Sender: FDA-Public Use
  Company Number: None

PATIENT
  Age: 75 Year
  Sex: Male

DRUGS (2)
  1. ACETAZOLAMIDE [Suspect]
     Indication: MACULAR OEDEMA
     Dosage: 500MG BID PO
     Route: 048
     Dates: start: 20071011, end: 20071016
  2. ACETAZOLAMIDE [Suspect]
     Indication: RETINAL OEDEMA
     Dosage: 500MG BID PO
     Route: 048
     Dates: start: 20071011, end: 20071016

REACTIONS (2)
  - CONFUSIONAL STATE [None]
  - FALL [None]
